FAERS Safety Report 4415753-6 (Version None)
Quarter: 2004Q2

REPORT INFORMATION
  Report Type: 
  Country: None (occurrence: None)
  Receive Date: 20040628
  Receipt Date: 20040310
  Transmission Date: 20050107
  Serious: Yes (Death)
  Sender: FDA-Public Use
  Company Number: 361565

PATIENT
  Age: 5 Year
  Sex: Male

DRUGS (1)
  1. CELLCEPT [Suspect]
     Indication: BONE MARROW TRANSPLANT
     Dosage: ORAL
     Route: 048
     Dates: start: 20020615

REACTIONS (1)
  - GRAFT VERSUS HOST DISEASE [None]
